FAERS Safety Report 17268044 (Version 2)
Quarter: 2020Q1

REPORT INFORMATION
  Report Type: Spontaneous
  Country: US (occurrence: US)
  Receive Date: 20200114
  Receipt Date: 20200116
  Transmission Date: 20200409
  Serious: Yes (Other)
  Sender: FDA-Public Use
  Company Number: US-PFIZER INC-2020011753

PATIENT
  Age: 42 Year
  Sex: Female

DRUGS (3)
  1. LEVETIRACETAM. [Concomitant]
     Active Substance: LEVETIRACETAM
     Indication: SEIZURE
     Dosage: 2000 MG, 1X/DAY
  2. PHENYTOIN. [Suspect]
     Active Substance: PHENYTOIN
     Indication: SEIZURE
     Dosage: 300 MG, UNK
  3. PHENYTOIN. [Suspect]
     Active Substance: PHENYTOIN
     Dosage: 28.6 G, UNK

REACTIONS (2)
  - Tonic convulsion [Unknown]
  - Overdose [Unknown]
